FAERS Safety Report 11658418 (Version 1)
Quarter: 2015Q4

REPORT INFORMATION
  Report Type: Spontaneous
  Country: US (occurrence: US)
  Receive Date: 20151026
  Receipt Date: 20151026
  Transmission Date: 20160304
  Serious: No
  Sender: FDA-Public Use
  Company Number: US-NOVEN PHARMACEUTICALS, INC.-US2015000745

PATIENT
  Age: 49 Year
  Sex: Female

DRUGS (2)
  1. BRISDELLE [Suspect]
     Active Substance: PAROXETINE MESYLATE
     Indication: HOT FLUSH
     Dosage: 7.5 MG, UNKNOWN
     Route: 048
     Dates: start: 20150821, end: 20150826
  2. BRISDELLE [Suspect]
     Active Substance: PAROXETINE MESYLATE
     Indication: NIGHT SWEATS

REACTIONS (5)
  - Therapy cessation [Unknown]
  - Malaise [Unknown]
  - Headache [Unknown]
  - Disorientation [Unknown]
  - Nausea [Unknown]

NARRATIVE: CASE EVENT DATE: 201508
